FAERS Safety Report 14689918 (Version 8)
Quarter: 2019Q4

REPORT INFORMATION
  Report Type: Report from Study
  Country: DE (occurrence: DE)
  Receive Date: 20180328
  Receipt Date: 20191118
  Transmission Date: 20200122
  Serious: Yes (Hospitalization, Other)
  Sender: FDA-Public Use
  Company Number: DE-MYLANLABS-2018M1008744

PATIENT
  Age: 70 Year
  Sex: Female
  Weight: 89 kg

DRUGS (7)
  1. TRASTUZUMAB. [Suspect]
     Active Substance: TRASTUZUMAB
     Indication: HER-2 POSITIVE BREAST CANCER
     Dosage: 6 MG/KG, Q21D, 08/DEC/2018, MOST RECENT DOSE OF TRASTUZUMAB WAS RECEIVED
     Route: 042
     Dates: start: 20171006, end: 20181208
  2. ZOLEDRONIC ACID [Suspect]
     Active Substance: ZOLEDRONIC ACID
     Indication: HER-2 POSITIVE BREAST CANCER
     Dosage: 4 MG, Q28D (ON 01/DEC/2017, RECEIVED MOST RECENT DOSE OF ZOLEDRONIC ACID)
     Route: 065
     Dates: start: 20171103, end: 20171201
  3. LOSARTAN. [Concomitant]
     Active Substance: LOSARTAN
     Indication: HYPERTENSION
     Dosage: UNK
     Route: 065
  4. PACLITAXEL. [Suspect]
     Active Substance: PACLITAXEL
     Indication: HER-2 POSITIVE BREAST CANCER
     Dosage: 240 MILLIGRAM/SQ. METER, DOSE: DAY 01, 08,15 INTERVAL 21
     Route: 065
     Dates: start: 20171006
  5. PACLITAXEL. [Suspect]
     Active Substance: PACLITAXEL
     Dosage: DAY 1, 8 AND 15 ON 08/DEC/2018, MOST RECENT DOSE OF PACLITAXEL
     Route: 065
     Dates: start: 20171006, end: 20181208
  6. PERTUZUMAB. [Suspect]
     Active Substance: PERTUZUMAB
     Indication: HER-2 POSITIVE BREAST CANCER
     Dosage: 420 MG, Q21D, DAY 1 ON 08/DEC/2018, MOST RECENT DOSE OF PERTUZUMAB WAS RECEIVED
     Route: 065
     Dates: start: 20171006, end: 20181208
  7. METOPROLOL. [Concomitant]
     Active Substance: METOPROLOL
     Indication: HYPERTENSION
     Dosage: 47.5 MG, UNK
     Route: 065

REACTIONS (9)
  - Diarrhoea [Recovered/Resolved]
  - Nail discolouration [Recovered/Resolved]
  - General physical health deterioration [Unknown]
  - Decreased appetite [Recovered/Resolved]
  - Skin toxicity [Recovered/Resolved]
  - Dyspnoea [Recovered/Resolved]
  - Malaise [Recovered/Resolved]
  - Nasopharyngitis [Recovered/Resolved]
  - Toxic epidermal necrolysis [Recovered/Resolved]

NARRATIVE: CASE EVENT DATE: 20171016
